FAERS Safety Report 15488686 (Version 1)
Quarter: 2018Q4

REPORT INFORMATION
  Report Type: Report from Study
  Country: JP (occurrence: JP)
  Receive Date: 20181011
  Receipt Date: 20181011
  Transmission Date: 20190205
  Serious: Yes (Hospitalization)
  Sender: FDA-Public Use
  Company Number: JP-VIFOR (INTERNATIONAL) INC.-VIT-2017-08816

PATIENT
  Age: 45 Year
  Sex: Female
  Weight: 92 kg

DRUGS (25)
  1. REGPARA [Concomitant]
     Active Substance: CINACALCET HYDROCHLORIDE
     Route: 048
  2. LUNESTA [Concomitant]
     Active Substance: ESZOPICLONE
     Route: 048
  3. ROCALTROL [Concomitant]
     Active Substance: CALCITRIOL
     Dates: start: 20170705
  4. GASMOTIN [Concomitant]
     Active Substance: MOSAPRIDE CITRATE
     Route: 048
  5. ROCALTROL [Concomitant]
     Active Substance: CALCITRIOL
     Dates: end: 20170703
  6. FLOMAX [Concomitant]
     Active Substance: TAMSULOSIN HYDROCHLORIDE
     Indication: INFECTION PROPHYLAXIS
     Route: 048
     Dates: start: 20170602, end: 20170605
  7. LYRICA [Concomitant]
     Active Substance: PREGABALIN
     Route: 048
  8. THEO-DUR [Concomitant]
     Active Substance: THEOPHYLLINE ANHYDROUS
     Dates: start: 20171002, end: 20171022
  9. VELPHORO [Suspect]
     Active Substance: FERRIC OXYHYDROXIDE
     Indication: HYPERPHOSPHATAEMIA
     Route: 048
     Dates: start: 20161205
  10. FOSRENOL [Concomitant]
     Active Substance: LANTHANUM CARBONATE
     Indication: HYPERPHOSPHATAEMIA
     Route: 048
  11. SEROQUEL [Concomitant]
     Active Substance: QUETIAPINE FUMARATE
     Route: 048
  12. RISUMIC [Concomitant]
     Active Substance: AMEZINIUM METILSULFATE
     Route: 048
  13. DOPS [Concomitant]
     Active Substance: DROXIDOPA
     Route: 048
  14. HOKUNALIN TAPE [Concomitant]
     Active Substance: TULOBUTEROL
     Route: 050
     Dates: start: 20161223, end: 20161230
  15. NESP [Concomitant]
     Active Substance: DARBEPOETIN ALFA
     Dates: end: 20170109
  16. FEBURIC [Concomitant]
     Active Substance: FEBUXOSTAT
     Route: 048
  17. AMITIZA [Concomitant]
     Active Substance: LUBIPROSTONE
     Route: 048
  18. NEXIUM [Concomitant]
     Active Substance: ESOMEPRAZOLE MAGNESIUM
     Route: 048
  19. ROCALTROL [Concomitant]
     Active Substance: CALCITRIOL
  20. NESP [Concomitant]
     Active Substance: DARBEPOETIN ALFA
     Dates: start: 20170116, end: 20170123
  21. RELVAR ELLIPTA [Concomitant]
     Active Substance: FLUTICASONE FUROATE\VILANTEROL TRIFENATATE
     Route: 050
     Dates: start: 20171025, end: 20171106
  22. MUCOSTA [Concomitant]
     Active Substance: REBAMIPIDE
     Route: 048
  23. DEPAS [Concomitant]
     Active Substance: ETIZOLAM
     Route: 048
  24. PLETAAL [Concomitant]
     Active Substance: CILOSTAZOL
     Route: 048
  25. FLOMAX [Concomitant]
     Active Substance: TAMSULOSIN HYDROCHLORIDE
     Route: 048
     Dates: start: 20171107, end: 20171109

REACTIONS (3)
  - Polycythaemia [Recovered/Resolved]
  - Shunt occlusion [Recovered/Resolved]
  - Haemoglobin increased [Recovered/Resolved]

NARRATIVE: CASE EVENT DATE: 20170109
